FAERS Safety Report 8611289-7 (Version None)
Quarter: 2012Q3

REPORT INFORMATION
  Report Type: 
  Country: None (occurrence: None)
  Receive Date: 20120822
  Receipt Date: 20120814
  Transmission Date: 20120928
  Serious: Yes (Other)
  Sender: FDA-Public Use
  Company Number: CA-ELI_LILLY_AND_COMPANY-CA201208004928

PATIENT
  Sex: Male

DRUGS (3)
  1. CRESTOR [Concomitant]
  2. CIALIS [Suspect]
     Indication: ERECTILE DYSFUNCTION
     Dosage: UNK
     Dates: start: 20120813, end: 20120814
  3. EZETIMIBE [Concomitant]

REACTIONS (1)
  - ANGIOEDEMA [None]
